FAERS Safety Report 16761352 (Version 1)
Quarter: 2019Q3

REPORT INFORMATION
  Report Type: Spontaneous
  Country: US (occurrence: US)
  Receive Date: 20190711
  Receipt Date: 20190711
  Transmission Date: 20191005
  Serious: Yes (Other)
  Sender: FDA-Public Use
  Company Number: None

PATIENT
  Age: 68 Year
  Sex: Female
  Weight: 47.17 kg

DRUGS (7)
  1. NEBULIZED AMIKACIN IN 9% SALINE [Concomitant]
  2. AURA PORTABLE NEBULIZER [Concomitant]
  3. NEBULIZED SALINE [Concomitant]
  4. AMITRIPTYLINE HCL [Concomitant]
     Active Substance: AMITRIPTYLINE
  5. LEVOFLOXACIN 500MG TABLET [Suspect]
     Active Substance: LEVOFLOXACIN
     Indication: CONDITION AGGRAVATED
     Dosage: ?          QUANTITY:500 MG MILLIGRAM(S);?
     Route: 048
     Dates: start: 20190614, end: 20190619
  6. LEVOFLOXACIN 500MG TABLET [Suspect]
     Active Substance: LEVOFLOXACIN
     Indication: BRONCHIECTASIS
     Dosage: ?          QUANTITY:500 MG MILLIGRAM(S);?
     Route: 048
     Dates: start: 20190614, end: 20190619
  7. PROMETHAZINE-DODEINE SYRUP [Concomitant]

REACTIONS (6)
  - Pain [None]
  - Musculoskeletal pain [None]
  - Feeling abnormal [None]
  - Mobility decreased [None]
  - Pain in extremity [None]
  - Arthralgia [None]

NARRATIVE: CASE EVENT DATE: 20190619
